FAERS Safety Report 21243474 (Version 1)
Quarter: 2022Q3

REPORT INFORMATION
  Report Type: Spontaneous
  Country: US (occurrence: None)
  Receive Date: 20220823
  Receipt Date: 20220823
  Transmission Date: 20221026
  Serious: No
  Sender: FDA-Public Use
  Company Number: None

PATIENT
  Age: 66 Year
  Sex: Male
  Weight: 79.38 kg

DRUGS (9)
  1. REBIF [Suspect]
     Active Substance: INTERFERON BETA-1A
     Indication: Multiple sclerosis
     Dosage: OTHER QUANTITY : 44MCG;?FREQUENCY : AS DIRECTED;?
     Route: 058
     Dates: start: 202208
  2. Amantadine HCI [Concomitant]
  3. BACLOFEN [Concomitant]
  4. FLOMAX [Concomitant]
  5. HIPREX [Concomitant]
  6. HYDROCHLOROTHAIZIDE [Concomitant]
  7. VITAMIN B COMPLEX [Concomitant]
  8. VITAMIN C [Concomitant]
  9. VITAMIN D [Concomitant]

REACTIONS (2)
  - Condition aggravated [None]
  - Therapy interrupted [None]
